FAERS Safety Report 8895775 (Version 4)
Quarter: 2013Q1

REPORT INFORMATION
  Report Type: Spontaneous
  Country: US (occurrence: US)
  Receive Date: 20121107
  Receipt Date: 20130308
  Transmission Date: 20140127
  Serious: Yes (Hospitalization, Other)
  Sender: FDA-Public Use
  Company Number: US-009507513-1206USA03580

PATIENT
  Sex: Female

DRUGS (5)
  1. FOSAMAX [Suspect]
     Indication: OSTEOPOROSIS
     Dosage: 10 MG, UNK
     Route: 048
     Dates: start: 199510, end: 200201
  2. FOSAMAX [Suspect]
     Dosage: 70 MG, UNK
     Route: 048
     Dates: start: 200201, end: 200803
  3. FOSAMAX [Suspect]
     Indication: OSTEOPOROSIS
     Dosage: 70 MG, UNK
     Route: 048
     Dates: start: 200803, end: 20091108
  4. CALCIUM (UNSPECIFIED) (+) VITAMIN D (UNSPECIFIED) [Concomitant]
     Dosage: 600 MG, BID/400 IU, BID
     Dates: start: 1990
  5. HORMONES (UNSPECIFIED) [Concomitant]
     Dosage: UNK
     Dates: start: 1984, end: 2002

REACTIONS (18)
  - Femur fracture [Recovering/Resolving]
  - Open reduction of fracture [Unknown]
  - Skeletal traction [Unknown]
  - Cholecystectomy [Unknown]
  - Femur fracture [Unknown]
  - Open reduction of fracture [Unknown]
  - Rib fracture [Unknown]
  - Dental prosthesis placement [Unknown]
  - Dental prosthesis placement [Unknown]
  - Fall [Unknown]
  - Fall [Unknown]
  - Shoulder operation [Unknown]
  - Hernia repair [Unknown]
  - Neuropathy peripheral [Unknown]
  - Osteomalacia [Unknown]
  - Myopathy [Unknown]
  - Gastrooesophageal reflux disease [Unknown]
  - Arthralgia [Unknown]
